FAERS Safety Report 4715381-9 (Version None)
Quarter: 2005Q3

REPORT INFORMATION
  Report Type: 
  Country: None (occurrence: None)
  Receive Date: 20050715
  Receipt Date: 20050311
  Transmission Date: 20060218
  Serious: Yes (Other)
  Sender: FDA-Public Use
  Company Number: US-MERCK-0503USA02651

PATIENT
  Age: 59 Year
  Sex: Male
  Weight: 82 kg

DRUGS (4)
  1. VIOXX [Suspect]
     Indication: ARTHRITIS
     Route: 048
     Dates: start: 20021001, end: 20040924
  2. VIOXX [Suspect]
     Indication: BACK PAIN
     Route: 048
     Dates: start: 20021001, end: 20040924
  3. OXYCODONE [Concomitant]
     Route: 065
  4. LAMOTRIGINE [Concomitant]
     Route: 065

REACTIONS (13)
  - BLINDNESS [None]
  - BLOOD CHOLESTEROL INCREASED [None]
  - CEREBROVASCULAR ACCIDENT [None]
  - CONGENITAL EYE NAEVUS [None]
  - CUTIS LAXA [None]
  - EYELID PTOSIS [None]
  - FAT EMBOLISM [None]
  - GASTRIC DISORDER [None]
  - HEADACHE [None]
  - INFLAMMATION [None]
  - MUSCLE SPASMS [None]
  - RETINAL ARTERY EMBOLISM [None]
  - RETINAL ARTERY OCCLUSION [None]
